FAERS Safety Report 24614681 (Version 1)
Quarter: 2024Q4

REPORT INFORMATION
  Report Type: Spontaneous
  Country: US (occurrence: US)
  Receive Date: 20241113
  Receipt Date: 20241113
  Transmission Date: 20250114
  Serious: Yes (Other)
  Sender: PFIZER
  Company Number: US-PFIZER INC-202400297564

PATIENT
  Age: 61 Year
  Sex: Male

DRUGS (3)
  1. INLYTA [Suspect]
     Active Substance: AXITINIB
     Dosage: TAKE 2 TABLETS OF 1 MG WITH 1 TABLET OF 5 MG TWICE DAILY FOR TOTAL DOSE OF 14 MG DAILY
     Dates: start: 20241018
  2. INLYTA [Suspect]
     Active Substance: AXITINIB
     Dosage: TAKE 2 TABLETS OF 1 MG WITH 1 TABLET OF 5 MG TWICE DAILY FOR TOTAL DOSE OF 14 MG DAILY
  3. INLYTA [Suspect]
     Active Substance: AXITINIB
     Dosage: TAKING 5-1 MG TABS AND 1-5 MG TAB (10 MG) TWICE DAILY

REACTIONS (1)
  - Blood pressure increased [Recovering/Resolving]

NARRATIVE: CASE EVENT DATE: 20240101
